FAERS Safety Report 8820749 (Version 1)
Quarter: 2012Q4

REPORT INFORMATION
  Report Type: 
  Country: DE (occurrence: DE)
  Receive Date: 20121002
  Receipt Date: 20121002
  Transmission Date: 20130627
  Serious: Yes (Other)
  Sender: FDA-Public Use
  Company Number: DE-PFIZER INC-2012235749

PATIENT
  Sex: Female
  Weight: 67 kg

DRUGS (1)
  1. SULFASALAZINE [Suspect]
     Indication: SPONDYLITIS
     Dosage: 2 g, UNK
     Route: 048
     Dates: start: 20100608, end: 20111122

REACTIONS (1)
  - Amnestic disorder [Recovered/Resolved]
